FAERS Safety Report 8861918 (Version 1)
Quarter: 2012Q4

REPORT INFORMATION
  Report Type: 
  Country: DE (occurrence: DE)
  Receive Date: 20121026
  Receipt Date: 20121026
  Transmission Date: 20130627
  Serious: Yes (Death)
  Sender: FDA-Public Use
  Company Number: DE-BRISTOL-MYERS SQUIBB COMPANY-17040817

PATIENT
  Age: 23 Year
  Sex: Male

DRUGS (5)
  1. DASATINIB [Suspect]
     Indication: CHRONIC MYELOID LEUKAEMIA
     Dosage: started with Dasatinib 100 mg/day-12 days
  2. LITALIR [Suspect]
  3. TACROLIMUS [Suspect]
  4. MYCOPHENOLATE MOFETIL [Suspect]
  5. PREDNISOLONE SODIUM SUCCINATE [Suspect]

REACTIONS (3)
  - Pneumonia cytomegaloviral [Fatal]
  - Nausea [Unknown]
  - Fatigue [Unknown]
